FAERS Safety Report 7389549-X (Version None)
Quarter: 2011Q2

REPORT INFORMATION
  Report Type: 
  Country: None (occurrence: None)
  Receive Date: 20110401
  Receipt Date: 20110322
  Transmission Date: 20111010
  Serious: Yes (Other)
  Sender: FDA-Public Use
  Company Number: PHHY2010BR72033

PATIENT
  Sex: Male

DRUGS (1)
  1. DIOVAN [Suspect]
     Dosage: 160 MG, UNK
     Route: 048

REACTIONS (2)
  - GENITOURINARY TRACT NEOPLASM [None]
  - BLOOD PRESSURE FLUCTUATION [None]
